FAERS Safety Report 15994402 (Version 1)
Quarter: 2019Q1

REPORT INFORMATION
  Report Type: Spontaneous
  Country: JP (occurrence: JP)
  Receive Date: 20190222
  Receipt Date: 20190222
  Transmission Date: 20190418
  Serious: Yes (Hospitalization, Congenital Anomaly)
  Sender: FDA-Public Use
  Company Number: JP-ASTELLAS-2019JP002526

PATIENT
  Age: 0 Day
  Sex: Female
  Weight: 2.15 kg

DRUGS (11)
  1. PREDONINE [Concomitant]
     Active Substance: PREDNISOLONE
     Route: 048
     Dates: start: 20171206, end: 20171224
  2. PROGRAF [Suspect]
     Active Substance: TACROLIMUS\TACROLIMUS ANHYDROUS
     Dosage: 5 MG, ONCE DAILY, AFTER BREAKFAST
     Route: 048
     Dates: start: 20171011, end: 20180117
  3. PREDONINE [Concomitant]
     Active Substance: PREDNISOLONE
     Dosage: TAPERED
     Route: 048
  4. PROGRAF [Suspect]
     Active Substance: TACROLIMUS\TACROLIMUS ANHYDROUS
     Dosage: 5.5 MG, ONCE DAILY, AFTER BREAKFAST
     Route: 048
     Dates: start: 20170926, end: 20171010
  5. PREDONINE [Concomitant]
     Active Substance: PREDNISOLONE
     Route: 048
     Dates: start: 20171225, end: 20180105
  6. PROGRAF [Suspect]
     Active Substance: TACROLIMUS\TACROLIMUS ANHYDROUS
     Indication: FOETAL EXPOSURE DURING PREGNANCY
     Dosage: 6 MG, ONCE DAILY, AFTER BREAKFAST
     Route: 048
     Dates: start: 201612, end: 20170925
  7. PREDONINE [Concomitant]
     Active Substance: PREDNISOLONE
     Indication: FOETAL EXPOSURE DURING PREGNANCY
     Dosage: 15 MG, ONCE DAILY, AFTER BREAKFAST
     Route: 048
     Dates: start: 201706, end: 20171205
  8. PREDONINE [Concomitant]
     Active Substance: PREDNISOLONE
     Route: 048
     Dates: start: 20180106, end: 20180109
  9. PREDONINE [Concomitant]
     Active Substance: PREDNISOLONE
     Dosage: 55 MG, ONCE DAILY, AFTER BREAKFAST
     Route: 048
     Dates: start: 20180110, end: 20180123
  10. ALDOMET [Concomitant]
     Active Substance: METHYLDOPA
     Indication: FOETAL EXPOSURE DURING PREGNANCY
     Dosage: 500 MG, THRICE DAILY, AFTER BREAKFAST
     Route: 048
     Dates: start: 201706, end: 201801
  11. PROGRAF [Suspect]
     Active Substance: TACROLIMUS\TACROLIMUS ANHYDROUS
     Dosage: 4 MG, ONCE DAILY, AFTER BREAKFAST
     Route: 048
     Dates: start: 20180118

REACTIONS (1)
  - Low birth weight baby [Recovered/Resolved]

NARRATIVE: CASE EVENT DATE: 20180109
